FAERS Safety Report 23614707 (Version 1)
Quarter: 2024Q1

REPORT INFORMATION
  Report Type: Spontaneous
  Country: DE (occurrence: DE)
  Receive Date: 20240311
  Receipt Date: 20240311
  Transmission Date: 20240409
  Serious: Yes (Other)
  Sender: FDA-Public Use
  Company Number: None

PATIENT
  Age: 55 Year
  Sex: Female
  Weight: 115 kg

DRUGS (8)
  1. VENLAFAXINE HYDROCHLORIDE [Concomitant]
     Active Substance: VENLAFAXINE HYDROCHLORIDE
     Dosage: 300 MG, QD
     Dates: start: 20200101
  2. CANDESARTAN CILEXETIL\HYDROCHLOROTHIAZIDE [Concomitant]
     Active Substance: CANDESARTAN CILEXETIL\HYDROCHLOROTHIAZIDE
     Dosage: 1 DF, QD
     Dates: start: 20030201
  3. LEVOTHYROXINE SODIUM [Concomitant]
     Active Substance: LEVOTHYROXINE SODIUM
     Indication: Hypothyroidism
     Dosage: 150 ?G, QD
     Dates: start: 19940101
  4. LEVOTHYROXINE SODIUM [Concomitant]
     Active Substance: LEVOTHYROXINE SODIUM
     Dosage: 125 ?G, QD(DOSE DECREASED)
  5. SIOFOR XR [Concomitant]
     Indication: Type 2 diabetes mellitus
     Dosage: 750 MG, QD
     Dates: start: 20220101
  6. LERCANIDIPINE HYDROCHLORIDE [Concomitant]
     Active Substance: LERCANIDIPINE HYDROCHLORIDE
     Indication: Hypertension
     Dosage: 10 MG, QD
     Dates: start: 20190101
  7. OZEMPIC [Suspect]
     Active Substance: SEMAGLUTIDE
     Indication: Type 2 diabetes mellitus
     Dosage: UNK
     Dates: start: 20230701, end: 20240206
  8. OZEMPIC [Suspect]
     Active Substance: SEMAGLUTIDE
     Indication: Obesity

REACTIONS (9)
  - Blindness transient [Recovered/Resolved]
  - Thyroxine free increased [Recovered/Resolved]
  - Visual impairment [Recovered/Resolved]
  - Fatigue [Recovered/Resolved]
  - Feeling abnormal [Recovered/Resolved]
  - Head discomfort [Recovered/Resolved]
  - Nervousness [Recovered/Resolved]
  - Impaired driving ability [Recovered/Resolved]
  - Panic attack [Recovered/Resolved]

NARRATIVE: CASE EVENT DATE: 20230701
